FAERS Safety Report 16232865 (Version 1)
Quarter: 2019Q2

REPORT INFORMATION
  Report Type: Spontaneous
  Country: FR (occurrence: FR)
  Receive Date: 20190424
  Receipt Date: 20190424
  Transmission Date: 20190711
  Serious: Yes (Death, Other)
  Sender: FDA-Public Use
  Company Number: FR-BAYER-2019-076422

PATIENT

DRUGS (3)
  1. NEXAVAR [Suspect]
     Active Substance: SORAFENIB
     Indication: HEPATOCELLULAR CARCINOMA
     Dosage: 800 MG, QD
  2. STIVARGA [Suspect]
     Active Substance: REGORAFENIB
     Indication: HEPATOCELLULAR CARCINOMA
     Dosage: UNK
     Dates: start: 201801, end: 201803
  3. NEXAVAR [Suspect]
     Active Substance: SORAFENIB
     Indication: HEPATOCELLULAR CARCINOMA
     Dosage: 400 MG, QD (FOR 15 DAYS)
     Dates: start: 20151208

REACTIONS (7)
  - Nephropathy [None]
  - Metastases to lung [None]
  - Hepatic function abnormal [None]
  - Hepatic encephalopathy [None]
  - Hypertension [None]
  - Off label use [None]
  - Anaemia [None]

NARRATIVE: CASE EVENT DATE: 201801
